FAERS Safety Report 5191203-X (Version None)
Quarter: 2006Q4

REPORT INFORMATION
  Report Type: 
  Country: None (occurrence: None)
  Receive Date: 20061220
  Receipt Date: 20061220
  Transmission Date: 20070319
  Serious: Yes (Hospitalization)
  Sender: FDA-Public Use
  Company Number: None

PATIENT
  Age: 53 Year
  Sex: Female

DRUGS (7)
  1. LITHIUM CARBONATE [Suspect]
     Indication: BIPOLAR DISORDER
     Dosage: 300 MG PO QID   CHRONIC
     Route: 048
  2. LITHIUM CARBONATE [Concomitant]
  3. SYNTHROID [Concomitant]
  4. SONATA [Concomitant]
  5. LORAZEPAM [Concomitant]
  6. LISINOPRIL [Concomitant]
  7. DOXYCYCLINE [Concomitant]

REACTIONS (9)
  - CLONUS [None]
  - DEHYDRATION [None]
  - DIARRHOEA [None]
  - HAEMODIALYSIS [None]
  - MENTAL STATUS CHANGES [None]
  - NEPHROGENIC DIABETES INSIPIDUS [None]
  - NODAL RHYTHM [None]
  - RENAL FAILURE ACUTE [None]
  - THERAPEUTIC AGENT TOXICITY [None]
